FAERS Safety Report 10721542 (Version 2)
Quarter: 2015Q1

REPORT INFORMATION
  Report Type: Report from Study
  Country: US (occurrence: US)
  Receive Date: 20150119
  Receipt Date: 20150303
  Transmission Date: 20150721
  Serious: Yes (Hospitalization, Other)
  Sender: FDA-Public Use
  Company Number: US-AMGEN-USASL2015003606

PATIENT
  Age: 60 Year
  Sex: Male
  Weight: 96.6 kg

DRUGS (4)
  1. ENBREL [Suspect]
     Active Substance: ETANERCEPT
     Indication: ANKYLOSING SPONDYLITIS
     Dosage: 50 MG, QWK
     Route: 058
     Dates: start: 20120112
  2. GLYBURIDE. [Concomitant]
     Active Substance: GLYBURIDE
     Indication: DIABETES MELLITUS
     Dosage: 2.5 UNK, 1/2 QD
     Route: 048
  3. GABAPENTIN. [Concomitant]
     Active Substance: GABAPENTIN
     Dosage: 300 UNK, TID
     Route: 048
  4. CELEBREX [Concomitant]
     Active Substance: CELECOXIB
     Indication: ANKYLOSING SPONDYLITIS
     Dosage: 200 UNK, BID
     Route: 048

REACTIONS (12)
  - Renal failure [Recovered/Resolved]
  - Blood glucose increased [Not Recovered/Not Resolved]
  - Pain in extremity [Recovered/Resolved]
  - Arthralgia [Recovered/Resolved]
  - Tendon operation [Recovered/Resolved]
  - Binge eating [Not Recovered/Not Resolved]
  - Localised infection [Recovered/Resolved]
  - Sensory loss [Not Recovered/Not Resolved]
  - Increased appetite [Not Recovered/Not Resolved]
  - Colorectal cancer [Recovered/Resolved]
  - Skin infection [Recovered/Resolved]
  - Muscular weakness [Recovered/Resolved]

NARRATIVE: CASE EVENT DATE: 20130423
